FAERS Safety Report 15995274 (Version 1)
Quarter: 2019Q1

REPORT INFORMATION
  Report Type: Spontaneous
  Country: US (occurrence: US)
  Receive Date: 20190222
  Receipt Date: 20190222
  Transmission Date: 20190418
  Serious: No
  Sender: FDA-Public Use
  Company Number: US-GLAXOSMITHKLINE-US2019028136

PATIENT
  Age: 89 Year
  Sex: Male

DRUGS (1)
  1. PREVACID 24 HR [Suspect]
     Active Substance: LANSOPRAZOLE
     Indication: GASTROOESOPHAGEAL REFLUX DISEASE
     Dosage: 1 UNK, 1D

REACTIONS (3)
  - Product use in unapproved indication [Unknown]
  - Incorrect product administration duration [Unknown]
  - Drug effective for unapproved indication [Unknown]
